FAERS Safety Report 26026005 (Version 1)
Quarter: 2025Q4

REPORT INFORMATION
  Report Type: Spontaneous
  Country: US (occurrence: None)
  Receive Date: 20251111
  Receipt Date: 20251111
  Transmission Date: 20260117
  Serious: Yes (Death)
  Sender: FDA-CTU
  Company Number: None

PATIENT
  Age: 62 Year
  Sex: Female
  Weight: 58.4 kg

DRUGS (1)
  1. PEMBROLIZUMAB [Suspect]
     Active Substance: PEMBROLIZUMAB
     Dates: end: 20251030

REACTIONS (11)
  - Syncope [None]
  - Cardiac arrest [None]
  - Metabolic acidosis [None]
  - Lactic acidosis [None]
  - Diabetic ketoacidosis [None]
  - Hyperglycaemia [None]
  - Hyperglycaemic hyperosmolar nonketotic syndrome [None]
  - Acute respiratory failure [None]
  - Aspiration [None]
  - Pneumonitis aspiration [None]
  - Brain oedema [None]

NARRATIVE: CASE EVENT DATE: 20251106
